FAERS Safety Report 5707205-8 (Version None)
Quarter: 2008Q2

REPORT INFORMATION
  Report Type: 
  Country: None (occurrence: None)
  Receive Date: 20080416
  Receipt Date: 20080409
  Transmission Date: 20081010
  Serious: Yes (Life-Threatening)
  Sender: FDA-Public Use
  Company Number: JP-AVENTIS-200810968JP

PATIENT
  Age: 9 Year
  Sex: Male

DRUGS (7)
  1. ALLEGRA [Suspect]
     Route: 048
     Dates: start: 20070129, end: 20080301
  2. KLARICID [Concomitant]
     Indication: ACUTE SINUSITIS
     Route: 048
     Dates: start: 20070219, end: 20070223
  3. KLARICID [Concomitant]
     Route: 048
     Dates: start: 20080111, end: 20080114
  4. DASEN [Concomitant]
     Indication: ACUTE SINUSITIS
     Route: 048
     Dates: start: 20070219, end: 20070223
  5. DASEN [Concomitant]
     Route: 048
     Dates: start: 20080111, end: 20080114
  6. MUCODYNE [Concomitant]
     Indication: ACUTE SINUSITIS
     Route: 048
     Dates: start: 20070219, end: 20070223
  7. MUCODYNE [Concomitant]
     Route: 048
     Dates: start: 20080111, end: 20080114

REACTIONS (1)
  - LOSS OF CONSCIOUSNESS [None]
